FAERS Safety Report 5898686-8 (Version None)
Quarter: 2008Q3

REPORT INFORMATION
  Report Type: 
  Country: None (occurrence: None)
  Receive Date: 20080925
  Receipt Date: 20080410
  Transmission Date: 20090109
  Serious: No
  Sender: FDA-Public Use
  Company Number: A0722126A

PATIENT
  Age: 64 Year
  Sex: Female

DRUGS (6)
  1. WELLBUTRIN XL [Suspect]
     Indication: DEPRESSION
     Dosage: 150MG PER DAY
     Route: 048
     Dates: start: 20080403
  2. HYDROCHLOROTHIAZIDE [Concomitant]
  3. HYZAAR [Concomitant]
  4. SERTRALINE [Concomitant]
  5. LEVOTHYROXINE SODIUM [Concomitant]
  6. ESTRATEST [Concomitant]

REACTIONS (1)
  - PHOTOPSIA [None]
